FAERS Safety Report 9529137 (Version 2)
Quarter: 2013Q3

REPORT INFORMATION
  Report Type: Not Available
  Country: US (occurrence: US)
  Receive Date: 20130916
  Receipt Date: 20130916
  Transmission Date: 20140515
  Serious: No
  Sender: FDA-Public Use
  Company Number: US-LUNDBECK-DKLU1085515

PATIENT
  Sex: Female
  Weight: 54 kg

DRUGS (7)
  1. ONFI [Suspect]
     Indication: CONVULSION
     Dates: end: 201208
  2. ONFI [Suspect]
     Dates: start: 201210
  3. ORAP [Concomitant]
     Indication: TIC
  4. ORAP [Concomitant]
  5. VIMPAT [Concomitant]
     Indication: EPILEPSY
  6. KEPPRA [Concomitant]
     Indication: EPILEPSY
  7. LAMOTRIGINE [Concomitant]
     Indication: EPILEPSY

REACTIONS (2)
  - Eye movement disorder [Unknown]
  - Dizziness [Unknown]
